FAERS Safety Report 16215994 (Version 1)
Quarter: 2019Q2

REPORT INFORMATION
  Report Type: Spontaneous
  Country: US (occurrence: US)
  Receive Date: 20190419
  Receipt Date: 20190419
  Transmission Date: 20190711
  Serious: No
  Sender: FDA-Public Use
  Company Number: US-ASTRAZENECA-2019SE47844

PATIENT
  Sex: Female
  Weight: 72.6 kg

DRUGS (1)
  1. FARXIGA [Suspect]
     Active Substance: DAPAGLIFLOZIN PROPANEDIOL
     Indication: TYPE 2 DIABETES MELLITUS
     Route: 048
     Dates: start: 20160111

REACTIONS (18)
  - Burning sensation [Recovered/Resolved]
  - Nausea [Not Recovered/Not Resolved]
  - Balance disorder [Not Recovered/Not Resolved]
  - Pruritus [Not Recovered/Not Resolved]
  - Oral discomfort [Not Recovered/Not Resolved]
  - Oropharyngeal pain [Not Recovered/Not Resolved]
  - Vaginal disorder [Recovering/Resolving]
  - Pollakiuria [Not Recovered/Not Resolved]
  - Lip disorder [Not Recovered/Not Resolved]
  - Nasal congestion [Unknown]
  - Vaginal lesion [Unknown]
  - Urticaria [Recovered/Resolved]
  - Fatigue [Not Recovered/Not Resolved]
  - Vulvovaginal dryness [Not Recovered/Not Resolved]
  - Dry throat [Not Recovered/Not Resolved]
  - Dizziness [Not Recovered/Not Resolved]
  - Cough [Unknown]
  - Mass [Not Recovered/Not Resolved]
